FAERS Safety Report 5072665-5 (Version None)
Quarter: 2006Q3

REPORT INFORMATION
  Report Type: 
  Country: None (occurrence: None)
  Receive Date: 20060807
  Receipt Date: 20060720
  Transmission Date: 20061208
  Serious: Yes (Disabling)
  Sender: FDA-Public Use
  Company Number: DE-GLAXOSMITHKLINE-D0050400A

PATIENT
  Age: 53 Year
  Sex: Male

DRUGS (5)
  1. QUILONUM RETARD [Suspect]
     Dosage: 675MG TWICE PER DAY
     Route: 048
     Dates: start: 19890101
  2. ERGENYL [Concomitant]
     Route: 065
  3. STILNOX [Concomitant]
     Route: 065
  4. VENLAFAXINE HCL [Concomitant]
     Route: 065
  5. RISPERDAL [Concomitant]
     Route: 065

REACTIONS (1)
  - TOOTH DISORDER [None]
